FAERS Safety Report 8966313 (Version 1)
Quarter: 2012Q4

REPORT INFORMATION
  Report Type: 
  Country: US (occurrence: US)
  Receive Date: 20121214
  Receipt Date: 20121214
  Transmission Date: 20130627
  Serious: Yes (Hospitalization, Other)
  Sender: FDA-Public Use
  Company Number: US-ELI_LILLY_AND_COMPANY-US201212001462

PATIENT
  Age: 57 Year
  Sex: Female
  Weight: 101.59 kg

DRUGS (19)
  1. BYDUREON [Suspect]
     Indication: INSULIN-REQUIRING TYPE 2 DIABETES MELLITUS
     Dosage: UNK, weekly (1/W)
     Route: 058
     Dates: start: 20120406, end: 20120508
  2. BYETTA [Suspect]
     Indication: INSULIN-REQUIRING TYPE 2 DIABETES MELLITUS
     Dosage: 5 ug, bid
     Route: 058
     Dates: start: 20110908
  3. LISINOPRIL [Concomitant]
     Indication: HYPERTENSION
     Dosage: 20 mg, qd
     Route: 048
     Dates: start: 20090302
  4. TRILIPIX [Concomitant]
     Indication: HYPERLIPIDAEMIA
     Dosage: 135 mg, qd
     Route: 048
     Dates: start: 20090302
  5. HYDROCHLOROTHIAZIDE [Concomitant]
     Indication: HYPERTENSION
     Dosage: 25 mg, qd
     Route: 048
     Dates: start: 20090302
  6. CELEXA [Concomitant]
     Indication: DEPRESSION
     Dosage: 40 mg, qd
     Route: 048
     Dates: start: 20090302
  7. FIORINAL [Concomitant]
     Indication: HEADACHE
     Dosage: 1 DF, prn
     Route: 048
     Dates: start: 20090302
  8. NIASPAN [Concomitant]
     Indication: HYPERLIPIDAEMIA
     Dosage: 500 mg, qd
     Route: 048
     Dates: start: 20090415
  9. PERCOCET [Concomitant]
     Indication: PAIN MANAGEMENT
     Dosage: UNK
     Route: 048
     Dates: start: 20090729
  10. BENADRYL                           /00000402/ [Concomitant]
     Indication: SEASONAL ALLERGY
     Dosage: UNK
     Route: 048
     Dates: start: 20090729
  11. PRANDIN [Concomitant]
     Indication: INSULIN-REQUIRING TYPE 2 DIABETES MELLITUS
     Dosage: 2 DF, tid
     Route: 048
     Dates: start: 20100616
  12. ACTOS [Concomitant]
     Indication: INSULIN-REQUIRING TYPE 2 DIABETES MELLITUS
     Dosage: 30 mg, qd
     Route: 048
     Dates: start: 20110601, end: 20120410
  13. WELCHOL [Concomitant]
     Indication: HYPERLIPIDAEMIA
     Dosage: 625 mg, tid
     Route: 048
     Dates: start: 20110601
  14. VITAMIN D [Concomitant]
     Indication: VITAMIN D DEFICIENCY
     Dosage: UNK
     Route: 048
     Dates: start: 20110908
  15. FISH OIL [Concomitant]
     Indication: MEDICAL DIET
     Dosage: 1200 mg, qd
     Route: 048
     Dates: start: 20110908
  16. B COMPLEX [Concomitant]
     Indication: MEDICAL DIET
     Dosage: 1 DF, qd
     Route: 048
     Dates: start: 20110908
  17. CO Q10 [Concomitant]
     Indication: MEDICAL DIET
     Dosage: 1 DF, qd
     Route: 048
     Dates: start: 20110908
  18. MULTIVITAMIN [Concomitant]
     Dosage: 1 DF, qd
     Route: 048
     Dates: start: 20110908
  19. LANTUS [Concomitant]
     Indication: INSULIN-REQUIRING TYPE 2 DIABETES MELLITUS
     Dosage: 15 IU, each evening
     Route: 058
     Dates: start: 20120209

REACTIONS (9)
  - Presyncope [Recovered/Resolved]
  - Orthostatic hypotension [Recovered/Resolved]
  - Dizziness [Recovered/Resolved]
  - Carotid arteriosclerosis [Unknown]
  - Arterial stenosis [Unknown]
  - Overdose [Unknown]
  - Hypophagia [Recovered/Resolved]
  - Nausea [Recovered/Resolved]
  - Off label use [Recovered/Resolved]
